FAERS Safety Report 10981558 (Version 1)
Quarter: 2015Q1

REPORT INFORMATION
  Report Type: Spontaneous
  Country: US (occurrence: None)
  Receive Date: 20150227
  Receipt Date: 20150227
  Transmission Date: 20150721
  Serious: Yes (Death)
  Sender: FDA-Public Use
  Company Number: LMI-2014-00162

PATIENT
  Age: 75 Year
  Sex: Male
  Weight: 104.6 kg

DRUGS (7)
  1. DEFINITY [Suspect]
     Active Substance: PERFLUTREN
     Indication: ECHOCARDIOGRAM
     Dosage: (1 ML OF DEFINITY DILUTED IN 9 ML OF SALINE) (3 ML, 1 IN 1 D)
     Route: 040
     Dates: start: 20140424, end: 20140424
  2. VANCOMYCIN [Concomitant]
     Active Substance: VANCOMYCIN
  3. PANTOPRAZOLE [Concomitant]
     Active Substance: PANTOPRAZOLE SODIUM
  4. PIPERACILLIN (PIPERACILLIN) [Concomitant]
  5. DEFINITY [Suspect]
     Active Substance: PERFLUTREN
     Indication: ECHOCARDIOGRAM
     Dosage: (1 ML OF DEFINITY DILUTED IN 9 ML OF SALINE) (3 ML, 1 IN 1 D)
     Route: 040
     Dates: start: 20140424, end: 20140424
  6. HEPARIN [Concomitant]
     Active Substance: HEPARIN SODIUM
  7. INSULIN (INSULIN) [Concomitant]
     Active Substance: INSULIN NOS

REACTIONS (2)
  - Pulmonary embolism [None]
  - Pre-existing disease [None]

NARRATIVE: CASE EVENT DATE: 20140424
